FAERS Safety Report 20781272 (Version 1)
Quarter: 2022Q2

REPORT INFORMATION
  Report Type: Spontaneous
  Country: AU (occurrence: AU)
  Receive Date: 20220504
  Receipt Date: 20220504
  Transmission Date: 20220721
  Serious: Yes (Death, Hospitalization)
  Sender: FDA-Public Use
  Company Number: AU-SUN PHARMACEUTICAL INDUSTRIES LTD-2022RR-335475

PATIENT
  Age: 63 Year
  Sex: Male

DRUGS (9)
  1. OXALIPLATIN [Suspect]
     Active Substance: OXALIPLATIN
     Indication: Neuroendocrine tumour
     Dosage: UNK, 6 CYCLES
     Route: 042
  2. CODEINE [Suspect]
     Active Substance: CODEINE
     Indication: Neuroendocrine tumour
     Dosage: UNK
     Route: 065
  3. ONDANSETRON [Suspect]
     Active Substance: ONDANSETRON
     Indication: Neuroendocrine tumour
     Dosage: UNK
     Route: 065
  4. LEUCOVORIN CALCIUM [Suspect]
     Active Substance: LEUCOVORIN CALCIUM
     Indication: Neuroendocrine tumour
     Dosage: UNK, 6 CYCLES
     Route: 042
  5. FLUOROURACIL [Suspect]
     Active Substance: FLUOROURACIL
     Indication: Neuroendocrine tumour
     Dosage: UNK, 6 CYCLES
     Route: 042
  6. OCTREOTIDE [Suspect]
     Active Substance: OCTREOTIDE
     Indication: Neuroendocrine tumour
     Dosage: UNK
     Route: 065
  7. OCTREOTIDE [Suspect]
     Active Substance: OCTREOTIDE
     Dosage: 60 MILLIGRAM/ SECOND WEEKLY
     Route: 030
  8. OCTREOTIDE [Suspect]
     Active Substance: OCTREOTIDE
     Dosage: 1200 MICROGRAM, DAILY
     Route: 050
  9. TELOTRISTAT [Suspect]
     Active Substance: TELOTRISTAT
     Indication: Neuroendocrine tumour
     Dosage: UNK
     Route: 065

REACTIONS (2)
  - Therapeutic product effect incomplete [Fatal]
  - Condition aggravated [Fatal]
